FAERS Safety Report 8066642-X (Version None)
Quarter: 2012Q1

REPORT INFORMATION
  Report Type: 
  Country: None (occurrence: None)
  Receive Date: 20120124
  Receipt Date: 20120119
  Transmission Date: 20120608
  Serious: Yes (Other)
  Sender: FDA-Public Use
  Company Number: US-PFIZER INC-2012000474

PATIENT
  Sex: Male
  Weight: 81 kg

DRUGS (16)
  1. METOPROLOL SUCCINATE [Concomitant]
     Indication: ATRIAL FIBRILLATION
     Dosage: 50 MG, DAILY
     Dates: start: 20050101
  2. CALCIUM [Concomitant]
     Dosage: UNK
  3. ASCORBIC ACID [Concomitant]
     Dosage: UNK
  4. BIOTENE [Suspect]
     Dosage: UNK
  5. PAROXETINE [Concomitant]
     Indication: ANXIETY
     Dosage: UNK
  6. OXYBUTYNIN [Concomitant]
     Indication: BLADDER DISORDER
     Dosage: 5 MG, 2X/DAY
     Dates: start: 20090101
  7. CHANTIX [Suspect]
     Indication: SMOKING CESSATION THERAPY
     Dosage: 0.5 MG, DAILY
     Route: 048
     Dates: start: 20111227
  8. CHANTIX [Suspect]
     Dosage: 0.5 MG, 2X/DAY
     Route: 048
     Dates: start: 20111231
  9. WELLBUTRIN [Suspect]
     Dosage: UNK
  10. METHOTREXATE [Concomitant]
     Indication: RHEUMATOID ARTHRITIS
     Dosage: 2.5 MG SIX TABLET IN A WEEK
     Dates: start: 20050101
  11. DIGOXIN [Concomitant]
     Indication: ATRIAL FIBRILLATION
     Dosage: 125 MG, DAILY
     Dates: start: 19860101
  12. SIMVASTATIN [Concomitant]
     Indication: BLOOD CHOLESTEROL INCREASED
     Dosage: 40 MG, DAILY
     Dates: start: 19980101
  13. FOLIC ACID [Concomitant]
     Indication: SUPPLEMENTATION THERAPY
     Dosage: 1 MG, DAILY
     Dates: start: 20050101
  14. FOLIC ACID [Concomitant]
     Indication: RHEUMATOID ARTHRITIS
     Dosage: UNK
  15. PAROXETINE HYDROCHLORIDE [Concomitant]
     Indication: ANXIETY
     Dosage: 30 MG, DAILY
     Dates: start: 20091001
  16. TOPROL-XL [Concomitant]
     Indication: ATRIAL FIBRILLATION
     Dosage: UNK

REACTIONS (8)
  - ERYTHEMA [None]
  - INSOMNIA [None]
  - MOUTH HAEMORRHAGE [None]
  - DRUG INEFFECTIVE [None]
  - STRESS [None]
  - ABNORMAL DREAMS [None]
  - IRRITABILITY [None]
  - DEPRESSED MOOD [None]
